FAERS Safety Report 6994243-0 (Version None)
Quarter: 2010Q3

REPORT INFORMATION
  Report Type: 
  Country: None (occurrence: None)
  Receive Date: 20100917
  Receipt Date: 20070605
  Transmission Date: 20110219
  Serious: Yes (Hospitalization, Other)
  Sender: FDA-Public Use
  Company Number: US-ASTRAZENECA-2007UW11806

PATIENT
  Age: 16386 Day
  Sex: Male
  Weight: 108 kg

DRUGS (18)
  1. SEROQUEL [Suspect]
     Route: 048
     Dates: start: 20000601
  2. SEROQUEL [Suspect]
     Dosage: 25 MG-50 MG AT NIGHT
     Route: 048
     Dates: start: 20010625
  3. SEROQUEL [Suspect]
     Route: 048
  4. LEXAPRO [Concomitant]
     Dates: start: 20040428
  5. LAMICTAL [Concomitant]
     Indication: HYPERLIPIDAEMIA
     Dosage: 25 MG-200 MG DAILY
     Dates: start: 20040428
  6. AMBIEN [Concomitant]
     Indication: INSOMNIA
     Dates: start: 20040428
  7. ZYPREXA [Concomitant]
     Dosage: 2.5 MG-30 MG AT NIGHT
     Dates: start: 20011114
  8. XANAX [Concomitant]
     Dosage: 3-4 PILLS AS REQUIRED PER WEEK
     Dates: start: 20040428
  9. PROZAC [Concomitant]
     Dosage: 20 MG-80 MG DAILY
     Dates: start: 19930101
  10. VIAGRA [Concomitant]
     Indication: ERECTILE DYSFUNCTION
     Dosage: 50 MG AS DIRECTED
     Dates: start: 20040209
  11. VYTORIN [Concomitant]
     Indication: HYPERLIPIDAEMIA
     Dosage: STRENGTH: EZETIMIBE (10 MG) AND SIMVASTATIN (20 MG)
     Dates: start: 20060531
  12. CYMBALTA [Concomitant]
     Dates: start: 20060531
  13. RISPERDAL [Concomitant]
     Dosage: 0.25 MG-3 MG DAILY
     Dates: start: 20001201
  14. RISPERDAL [Concomitant]
     Dates: start: 20010101
  15. RISPERDAL [Concomitant]
     Dates: start: 20010101
  16. GEODON [Concomitant]
     Dosage: 10 MG-40 MG DAILY
     Dates: start: 20010821
  17. ABILIFY [Concomitant]
     Dosage: TOTAL DAILY DOSE 30 MG
  18. THORAZINE [Concomitant]

REACTIONS (4)
  - DEPRESSION [None]
  - DIABETES MELLITUS [None]
  - DIABETES MELLITUS INADEQUATE CONTROL [None]
  - OBESITY [None]
